FAERS Safety Report 23495508 (Version 1)
Quarter: 2024Q1

REPORT INFORMATION
  Report Type: Spontaneous
  Country: US (occurrence: US)
  Receive Date: 20240207
  Receipt Date: 20240207
  Transmission Date: 20240410
  Serious: No
  Sender: FDA-Public Use
  Company Number: US-PFIZER INC-202300439510

PATIENT
  Age: 60 Year
  Sex: Female
  Weight: 61.224 kg

DRUGS (1)
  1. METHOTREXATE SODIUM [Suspect]
     Active Substance: METHOTREXATE SODIUM
     Indication: Scleroderma
     Dosage: UNK

REACTIONS (2)
  - Alopecia [Unknown]
  - Off label use [Unknown]
